FAERS Safety Report 19215017 (Version 2)
Quarter: 2021Q2

REPORT INFORMATION
  Report Type: Spontaneous
  Country: US (occurrence: US)
  Receive Date: 20210504
  Receipt Date: 20210519
  Transmission Date: 20210717
  Serious: Yes (Other)
  Sender: FDA-Public Use
  Company Number: US-GW PHARMA-202104USGW02093

PATIENT

DRUGS (3)
  1. EPIDIOLEX [Suspect]
     Active Substance: CANNABIDIOL
     Indication: PARTIAL SEIZURES
     Dosage: 21.42 MG/KG/DAY, 750 MILLIGRAM, BID
     Route: 048
     Dates: start: 20201209, end: 20210309
  2. EPIDIOLEX [Suspect]
     Active Substance: CANNABIDIOL
     Dosage: 19.42 MG/KG/DAY, 680 MILLIGRAM, BID
     Route: 048
     Dates: start: 20210310
  3. EPIDIOLEX [Suspect]
     Active Substance: CANNABIDIOL
     Indication: EPILEPSY
     Dosage: ON 08 DEC 2020, 19.42 MG/KG/DAY, 680 MILLIGRAM, BID
     Route: 048

REACTIONS (4)
  - Product use in unapproved indication [Unknown]
  - Incorrect dose administered [Unknown]
  - Seizure [Unknown]
  - Prescribed overdose [Unknown]

NARRATIVE: CASE EVENT DATE: 20210310
